FAERS Safety Report 13650314 (Version 4)
Quarter: 2018Q1

REPORT INFORMATION
  Report Type: Spontaneous
  Country: JP (occurrence: JP)
  Receive Date: 20170614
  Receipt Date: 20180205
  Transmission Date: 20180508
  Serious: Yes (Hospitalization, Disabling, Other)
  Sender: FDA-Public Use
  Company Number: PHJP2017JP018817

PATIENT
  Age: 77 Year
  Sex: Male
  Weight: 60 kg

DRUGS (8)
  1. NEXIUM [Concomitant]
     Active Substance: ESOMEPRAZOLE MAGNESIUM
     Indication: PRODUCT USED FOR UNKNOWN INDICATION
     Dosage: 20 MG, QD
     Route: 065
     Dates: start: 20170502
  2. FLORINEF ACETATE [Concomitant]
     Active Substance: FLUDROCORTISONE ACETATE
     Indication: PRODUCT USED FOR UNKNOWN INDICATION
     Dosage: 0.05 G, QD
     Route: 065
     Dates: start: 20170520
  3. MAGNESIUM OXIDE. [Concomitant]
     Active Substance: MAGNESIUM OXIDE
     Indication: PRODUCT USED FOR UNKNOWN INDICATION
     Dosage: 50 MG, TID
     Route: 065
     Dates: start: 20170505
  4. NEORAL [Suspect]
     Active Substance: CYCLOSPORINE
     Dosage: 180 MG, QD
     Route: 048
     Dates: start: 20170519, end: 20170601
  5. DERMOVATE [Concomitant]
     Active Substance: CLOBETASOL
     Indication: PRODUCT USED FOR UNKNOWN INDICATION
     Dosage: UNK
     Route: 065
     Dates: start: 20170426, end: 20170515
  6. ZINC OXIDE. [Concomitant]
     Active Substance: ZINC OXIDE
     Indication: PRODUCT USED FOR UNKNOWN INDICATION
     Dosage: UNK
     Route: 065
     Dates: start: 20170426, end: 20170515
  7. NEORAL [Suspect]
     Active Substance: CYCLOSPORINE
     Indication: PUSTULAR PSORIASIS
     Dosage: 150 MG, QD
     Route: 048
     Dates: start: 20170512, end: 20170518
  8. ANTEBATE [Concomitant]
     Active Substance: BETAMETHASONE DIPROPIONATE
     Indication: PRODUCT USED FOR UNKNOWN INDICATION
     Dosage: 50 G, QD
     Route: 065
     Dates: start: 20170516

REACTIONS (17)
  - Subarachnoid haemorrhage [Recovering/Resolving]
  - Delirium [Unknown]
  - Pustular psoriasis [Unknown]
  - Disease progression [Unknown]
  - Nail disorder [Unknown]
  - Pyrexia [Recovering/Resolving]
  - C-reactive protein increased [Unknown]
  - Weight decreased [Unknown]
  - Rash [Not Recovered/Not Resolved]
  - Pneumonia aspiration [Recovered/Resolved]
  - Skin exfoliation [Unknown]
  - Cerebral ventricle dilatation [Unknown]
  - Rib fracture [Unknown]
  - Dementia [Recovered/Resolved with Sequelae]
  - Dizziness [Unknown]
  - Drug effect incomplete [Unknown]
  - Fall [Unknown]

NARRATIVE: CASE EVENT DATE: 201705
